FAERS Safety Report 25212211 (Version 1)
Quarter: 2025Q2

REPORT INFORMATION
  Report Type: Spontaneous
  Country: KR (occurrence: KR)
  Receive Date: 20250418
  Receipt Date: 20250418
  Transmission Date: 20250716
  Serious: Yes (Hospitalization)
  Sender: ROCHE
  Company Number: KR-CHEPLA-2025004659

PATIENT
  Age: 59 Year
  Sex: Female

DRUGS (16)
  1. VALGANCICLOVIR [Suspect]
     Active Substance: VALGANCICLOVIR
     Indication: Cytomegalovirus infection
     Dosage: 900MG Q12 HR D14, 22, 28, PREEMPTIVE THERAPY
     Route: 048
  2. VALGANCICLOVIR [Suspect]
     Active Substance: VALGANCICLOVIR
     Dosage: 900MG Q12 HR (TREATMENT DOSE) FOR 2 WEEKS
     Route: 048
  3. VALGANCICLOVIR [Suspect]
     Active Substance: VALGANCICLOVIR
     Dosage: 900 MG Q24 HR (PROPHYLACTIC DOSE) D49, 62, 69, 83, 90, 97, 111, 125, 131, 139, 146, 158
     Route: 048
  4. GANCICLOVIR [Suspect]
     Active Substance: GANCICLOVIR
     Indication: Cytomegalovirus infection
     Route: 065
  5. LETERMOVIR [Concomitant]
     Active Substance: LETERMOVIR
     Indication: Cytomegalovirus infection
     Dosage: 480MG Q24 HR D 0,4,7,11,14
     Route: 065
  6. LETERMOVIR [Concomitant]
     Active Substance: LETERMOVIR
     Indication: Gastrointestinal toxicity
     Dosage: 480MG Q24 HR D 0,4,7,11,14
     Route: 065
  7. LETERMOVIR [Concomitant]
     Active Substance: LETERMOVIR
     Indication: Cardiac disorder
  8. FOSCARNET [Concomitant]
     Active Substance: FOSCARNET
     Indication: Cytomegalovirus infection
     Dosage: 90MG/KG Q12 HR D152
     Route: 065
  9. FOSCARNET [Concomitant]
     Active Substance: FOSCARNET
     Dosage: 90MG/KG Q24 HR (3,600 MG) D 165, 172, 182, 193, 202, 214, 221; RESTARTED WHEN IT BECAME AVAILABLE
     Route: 065
  10. FOSCARNET [Concomitant]
     Active Substance: FOSCARNET
     Dosage: 90MG/KG Q12 HR D152
     Route: 065
  11. FOSCARNET [Concomitant]
     Active Substance: FOSCARNET
     Dosage: 90MG/KG Q24 HR (3,600 MG) D 165, 172, 182, 193, 202, 214, 221; RESTARTED WHEN IT BECAME AVAILABLE
     Route: 065
  12. TACROLIMUS [Concomitant]
     Active Substance: TACROLIMUS
     Indication: Cytomegalovirus infection
     Route: 065
  13. CIDOFOVIR [Concomitant]
     Active Substance: CIDOFOVIR
     Indication: Cytomegalovirus infection
     Route: 065
  14. CIDOFOVIR [Concomitant]
     Active Substance: CIDOFOVIR
     Route: 065
  15. ACYCLOVIR [Concomitant]
     Active Substance: ACYCLOVIR
     Indication: Antiviral prophylaxis
     Route: 065
  16. ACYCLOVIR [Concomitant]
     Active Substance: ACYCLOVIR
     Route: 065

REACTIONS (2)
  - Nausea [Unknown]
  - Drug resistance [Unknown]
